FAERS Safety Report 5335936-0 (Version None)
Quarter: 2007Q2

REPORT INFORMATION
  Report Type: 
  Country: None (occurrence: None)
  Receive Date: 20070301
  Receipt Date: 20061031
  Transmission Date: 20071010
  Serious: Yes (Other)
  Sender: FDA-Public Use
  Company Number: US200611000116

PATIENT
  Age: 30 Year
  Sex: Female

DRUGS (1)
  1. SYMBYAX [Suspect]
     Indication: BIPOLAR DISORDER
     Dosage: 625 MG
     Dates: start: 20060901, end: 20061024

REACTIONS (3)
  - HEPATIC ENZYME INCREASED [None]
  - OEDEMA [None]
  - WEIGHT INCREASED [None]
